FAERS Safety Report 24894789 (Version 1)
Quarter: 2025Q1

REPORT INFORMATION
  Report Type: Spontaneous
  Country: US (occurrence: US)
  Receive Date: 20250128
  Receipt Date: 20250128
  Transmission Date: 20250408
  Serious: Yes (Other)
  Sender: ALVA-AMCO PHARMACAL COMPANIES, INC.
  Company Number: US-Alva-Amco Pharmacal Companies, Inc.-2169899

PATIENT

DRUGS (1)
  1. DIUREX ULTRA [Suspect]
     Active Substance: CAFFEINE
     Indication: Fluid retention
     Dates: start: 20250119, end: 20250119

REACTIONS (3)
  - Heart rate increased [Unknown]
  - Dizziness [Unknown]
  - Vomiting [Unknown]

NARRATIVE: CASE EVENT DATE: 20250119
